FAERS Safety Report 4587427-2 (Version None)
Quarter: 2005Q1

REPORT INFORMATION
  Report Type: 
  Country: None (occurrence: None)
  Receive Date: 20050215
  Receipt Date: 20041117
  Transmission Date: 20050727
  Serious: Yes (Hospitalization, Other)
  Sender: FDA-Public Use
  Company Number: 2004238411ZA

PATIENT
  Age: 68 Year
  Sex: Male

DRUGS (3)
  1. BEXTRA [Suspect]
     Indication: CONTUSION
     Dosage: 40 MG (40 MG, 1 IN 1 D), ORAL
     Route: 048
     Dates: start: 20040901
  2. AMLODIPINE BESYLATE [Concomitant]
  3. METFORMIN HCL [Concomitant]

REACTIONS (20)
  - ACUTE PULMONARY OEDEMA [None]
  - AGITATION [None]
  - ATRIAL FIBRILLATION [None]
  - CEREBROVASCULAR ACCIDENT [None]
  - CHEST INJURY [None]
  - CLOSTRIDIAL INFECTION [None]
  - DIALYSIS [None]
  - DUODENAL POLYP [None]
  - FACIAL PARESIS [None]
  - FALL [None]
  - FLUID RETENTION [None]
  - GALLOP RHYTHM PRESENT [None]
  - GASTROINTESTINAL HAEMORRHAGE [None]
  - HYPERTENSION [None]
  - HYPOTENSION [None]
  - ISCHAEMIA [None]
  - LEFT VENTRICULAR FAILURE [None]
  - MITRAL VALVE INCOMPETENCE [None]
  - OVERDOSE [None]
  - RENAL FAILURE [None]
